FAERS Safety Report 16145084 (Version 1)
Quarter: 2019Q2

REPORT INFORMATION
  Report Type: Spontaneous
  Country: ES (occurrence: ES)
  Receive Date: 20190402
  Receipt Date: 20190402
  Transmission Date: 20190711
  Serious: Yes (Hospitalization, Other)
  Sender: FDA-Public Use
  Company Number: ES-TEVA-2019-ES-1031915

PATIENT
  Age: 78 Year
  Sex: Female

DRUGS (6)
  1. DUROGESIC MATRIX 50 MICROGRAMOS/H PARCHES TRANSDERMICOS , 5 PARCHES [Interacting]
     Active Substance: FENTANYL
     Indication: BACK PAIN
     Dosage: THE MAP STARTED WITH 12 MICROGRAMS/H IN FEBRUARY 2017, IN MARCH 2017 LE PAUTO OF 25 MICROGRAMS/H AND
     Route: 062
     Dates: start: 201712
  2. EXFORGE HCT [Interacting]
     Active Substance: AMLODIPINE BESYLATE\HYDROCHLOROTHIAZIDE\VALSARTAN
     Indication: HYPERTENSION
     Dosage: 1 DOSAGE FORMS DAILY;
     Route: 048
     Dates: start: 201011
  3. TOVIAZ [Interacting]
     Active Substance: FESOTERODINE FUMARATE
     Indication: HYPERTONIC BLADDER
     Dosage: 8 MILLIGRAM DAILY;
     Route: 048
     Dates: start: 201301, end: 2018
  4. LORAZEPAM 1 MG 50 COMPRIMIDOS [Interacting]
     Active Substance: LORAZEPAM
     Indication: ADJUSTMENT DISORDER WITH DEPRESSED MOOD
     Dosage: 1 MILLIGRAM DAILY; 0-0-0-1
     Route: 048
     Dates: start: 201201, end: 2018
  5. EFFERALGAN [Concomitant]
     Active Substance: ACETAMINOPHEN
     Dosage: 1-1-1-0, UP TO 3 A DAY, FOR PAIN. 1 EVERY 8 HOURS
     Route: 048
  6. FLUOXETINA 20 MG 28 C?PSULAS [Suspect]
     Active Substance: FLUOXETINE HYDROCHLORIDE
     Indication: ADJUSTMENT DISORDER WITH DEPRESSED MOOD
     Dosage: 20 MILLIGRAM DAILY;
     Route: 048
     Dates: start: 201201, end: 2018

REACTIONS (2)
  - Parotitis [Recovered/Resolved]
  - Drug interaction [Unknown]

NARRATIVE: CASE EVENT DATE: 201808
